FAERS Safety Report 16635113 (Version 1)
Quarter: 2019Q3

REPORT INFORMATION
  Report Type: Spontaneous
  Country: GB (occurrence: GB)
  Receive Date: 20190726
  Receipt Date: 20190726
  Transmission Date: 20191004
  Serious: Yes (Hospitalization)
  Sender: FDA-Public Use
  Company Number: GB-TEVA-2019-GB-1083214

PATIENT
  Age: 46 Year
  Sex: Female

DRUGS (5)
  1. ONDANSETRON [Concomitant]
     Active Substance: ONDANSETRON
  2. ENOXAPARIN [Concomitant]
     Active Substance: ENOXAPARIN
  3. PARACETAMOL [Concomitant]
     Active Substance: ACETAMINOPHEN
  4. CO-AMOXICLAV [Suspect]
     Active Substance: AMOXICILLIN\CLAVULANATE POTASSIUM
     Indication: APPENDICITIS
     Dosage: 1875 MILLIGRAM DAILY;
     Route: 048
     Dates: start: 20190527
  5. MORPHINE SULFATE. [Concomitant]
     Active Substance: MORPHINE SULFATE

REACTIONS (1)
  - Liver function test abnormal [Recovering/Resolving]

NARRATIVE: CASE EVENT DATE: 20190528
